FAERS Safety Report 10027157 (Version 1)
Quarter: 2014Q1

REPORT INFORMATION
  Report Type: Spontaneous
  Country: US (occurrence: US)
  Receive Date: 20140321
  Receipt Date: 20140321
  Transmission Date: 20141002
  Serious: No
  Sender: FDA-Public Use
  Company Number: US-MYLANLABS-2013S1023796

PATIENT
  Age: 46 Year
  Sex: Female
  Weight: 81.65 kg

DRUGS (3)
  1. ESTRADIOL TRANSDERMAL SYSTEM, USP [Suspect]
     Indication: ARTIFICIAL MENOPAUSE
     Dosage: QWEEK
     Route: 062
     Dates: start: 201308
  2. ESTRADIOL TRANSDERMAL SYSTEM, USP [Suspect]
     Indication: ARTIFICIAL MENOPAUSE
     Dosage: QWEEK
     Route: 062
     Dates: start: 201304, end: 201305
  3. MOTRIN [Concomitant]

REACTIONS (2)
  - Application site rash [Not Recovered/Not Resolved]
  - Application site erythema [Not Recovered/Not Resolved]
